FAERS Safety Report 18817173 (Version 1)
Quarter: 2021Q1

REPORT INFORMATION
  Report Type: Other
  Country: IT (occurrence: IT)
  Receive Date: 20210201
  Receipt Date: 20210201
  Transmission Date: 20210419
  Serious: Yes (Death)
  Sender: FDA-Public Use
  Company Number: IT-SERVIER-S21000528

PATIENT

DRUGS (1)
  1. ONCASPAR [Suspect]
     Active Substance: PEGASPARGASE
     Indication: ACUTE LYMPHOCYTIC LEUKAEMIA
     Dosage: 1000 MG/M2
     Route: 042
     Dates: start: 20201209, end: 20201209

REACTIONS (5)
  - Coma hepatic [Fatal]
  - Hepatic failure [Fatal]
  - Hepatomegaly [Fatal]
  - Multiple organ dysfunction syndrome [Fatal]
  - Hepatic steatosis [Fatal]

NARRATIVE: CASE EVENT DATE: 20201230
